FAERS Safety Report 19081985 (Version 1)
Quarter: 2021Q2

REPORT INFORMATION
  Report Type: Spontaneous
  Country: FR (occurrence: FR)
  Receive Date: 20210401
  Receipt Date: 20210401
  Transmission Date: 20210717
  Serious: Yes (Death)
  Sender: FDA-Public Use
  Company Number: FR-B.BRAUN MEDICAL INC.-2108748

PATIENT
  Age: 38 Year
  Sex: Female

DRUGS (4)
  1. CODEINE [Concomitant]
     Active Substance: CODEINE
  2. ACETAMINOPHEN. [Suspect]
     Active Substance: ACETAMINOPHEN
  3. ALCOHOL. [Concomitant]
     Active Substance: ALCOHOL
  4. HEROIN [Concomitant]
     Active Substance: DIAMORPHINE

REACTIONS (2)
  - Asphyxia [Fatal]
  - Drug abuse [Fatal]
